FAERS Safety Report 5037028-7 (Version None)
Quarter: 2006Q2

REPORT INFORMATION
  Report Type: 
  Country: None (occurrence: None)
  Receive Date: 20060601
  Receipt Date: 20060206
  Transmission Date: 20061013
  Serious: Yes (Other)
  Sender: FDA-Public Use
  Company Number: 2006_000006

PATIENT
  Sex: Female

DRUGS (5)
  1. DEPOCYT [Suspect]
     Indication: LEUKAEMIA
     Dosage: 50 MG; QOW; INTH
     Route: 037
  2. DEPOCYT [Suspect]
     Indication: PROPHYLAXIS
     Dosage: 50 MG; QOW; INTH
     Route: 037
  3. DEXAMETHASONE TAB [Concomitant]
  4. METHOTREXATE SODIUM [Concomitant]
  5. CYTARABINE [Concomitant]

REACTIONS (2)
  - FAECAL INCONTINENCE [None]
  - HYPOAESTHESIA [None]
